FAERS Safety Report 12969262 (Version 1)
Quarter: 2016Q4

REPORT INFORMATION
  Report Type: Spontaneous
  Country: US (occurrence: US)
  Receive Date: 20161123
  Receipt Date: 20161123
  Transmission Date: 20170207
  Serious: No
  Sender: FDA-Public Use
  Company Number: US-SHIRE-US201617773

PATIENT
  Sex: Female

DRUGS (2)
  1. LIALDA [Suspect]
     Active Substance: MESALAMINE
     Indication: CROHN^S DISEASE
     Dosage: UNK, UNKNOWN
     Route: 048
  2. HUMIRA [Suspect]
     Active Substance: ADALIMUMAB
     Indication: CROHN^S DISEASE
     Dosage: UNK, UNKNOWN
     Route: 065

REACTIONS (8)
  - Headache [Unknown]
  - Somnolence [Unknown]
  - Dry throat [Unknown]
  - Arthralgia [Unknown]
  - Throat irritation [Unknown]
  - Condition aggravated [Unknown]
  - Product use issue [Unknown]
  - Myalgia [Unknown]
